FAERS Safety Report 9191473 (Version 3)
Quarter: 2013Q2

REPORT INFORMATION
  Report Type: Report from Study
  Country: US (occurrence: US)
  Receive Date: 20130326
  Receipt Date: 20130509
  Transmission Date: 20140414
  Serious: Yes (Other)
  Sender: FDA-Public Use
  Company Number: US-US-EMD SERONO, INC.-7201545

PATIENT
  Age: 58 Year
  Sex: Female

DRUGS (2)
  1. REBIF [Suspect]
     Indication: MULTIPLE SCLEROSIS
     Route: 058
     Dates: start: 20120806
  2. ACETAMINOPHEN [Concomitant]
     Indication: PREMEDICATION

REACTIONS (11)
  - Bone cancer [Unknown]
  - Urine albumin/creatinine ratio increased [Unknown]
  - Albumin urine present [Unknown]
  - Glomerular filtration rate decreased [Unknown]
  - Hyperproteinaemia [Unknown]
  - Light chain analysis increased [Unknown]
  - Antineutrophil cytoplasmic antibody positive [Unknown]
  - Carpal tunnel syndrome [Not Recovered/Not Resolved]
  - Occult blood positive [Unknown]
  - Somnolence [Not Recovered/Not Resolved]
  - Injection site erythema [Not Recovered/Not Resolved]
